FAERS Safety Report 7228539-4 (Version None)
Quarter: 2011Q1

REPORT INFORMATION
  Report Type: 
  Country: None (occurrence: None)
  Receive Date: 20110117
  Receipt Date: 20110106
  Transmission Date: 20110831
  Serious: Yes (Hospitalization)
  Sender: FDA-Public Use
  Company Number: US-BIOGENIDEC-2011BI001004

PATIENT
  Age: 48 Year
  Sex: Male

DRUGS (2)
  1. LAMICTAL [Concomitant]
     Indication: CONVULSION
  2. TYSABRI [Suspect]
     Indication: MULTIPLE SCLEROSIS
     Route: 042
     Dates: start: 20090514

REACTIONS (1)
  - CONVULSION [None]
